FAERS Safety Report 12265542 (Version 1)
Quarter: 2016Q2

REPORT INFORMATION
  Report Type: Spontaneous
  Country: FR (occurrence: FR)
  Receive Date: 20160413
  Receipt Date: 20160413
  Transmission Date: 20160815
  Serious: Yes (Life-Threatening)
  Sender: FDA-Public Use
  Company Number: FR-ASTRAZENECA-2016SE37394

PATIENT
  Age: 66 Year
  Sex: Male
  Weight: 80 kg

DRUGS (11)
  1. NOVORAPID [Concomitant]
     Active Substance: INSULIN ASPART
  2. BRILIQUE [Suspect]
     Active Substance: TICAGRELOR
     Indication: TROPONIN INCREASED
     Route: 048
     Dates: start: 20160323, end: 20160325
  3. PROCORALAN [Suspect]
     Active Substance: IVABRADINE
     Indication: TROPONIN INCREASED
     Route: 048
     Dates: start: 20160323, end: 20160325
  4. ATARAX [Concomitant]
     Active Substance: HYDROXYZINE\HYDROXYZINE HYDROCHLORIDE
  5. BRICANYL [Concomitant]
     Active Substance: TERBUTALINE SULFATE
  6. NOVONORM [Concomitant]
     Active Substance: REPAGLINIDE
  7. MOPRAL [Concomitant]
     Active Substance: OMEPRAZOLE SODIUM
  8. FORLAX [Concomitant]
     Active Substance: POLYETHYLENE GLYCOL 4000
  9. LANTUS [Concomitant]
     Active Substance: INSULIN GLARGINE
  10. APROVEL [Concomitant]
     Active Substance: IRBESARTAN
  11. VICTOZA [Concomitant]
     Active Substance: LIRAGLUTIDE

REACTIONS (1)
  - Atrioventricular block complete [Not Recovered/Not Resolved]

NARRATIVE: CASE EVENT DATE: 20160325
